FAERS Safety Report 21131780 (Version 1)
Quarter: 2022Q3

REPORT INFORMATION
  Report Type: Spontaneous
  Country: US (occurrence: None)
  Receive Date: 20220725
  Receipt Date: 20220725
  Transmission Date: 20221026
  Serious: No
  Sender: FDA-Public Use
  Company Number: None

PATIENT
  Age: 39 Year
  Sex: Male
  Weight: 95.71 kg

DRUGS (2)
  1. PAXLOVID [Suspect]
     Active Substance: NIRMATRELVIR\RITONAVIR
     Indication: COVID-19 treatment
     Dates: start: 20220720, end: 20220721
  2. Paxlovid Dose Pack [Concomitant]

REACTIONS (3)
  - Dysgeusia [None]
  - Dizziness [None]
  - Tremor [None]

NARRATIVE: CASE EVENT DATE: 20220721
